FAERS Safety Report 7244252-1 (Version None)
Quarter: 2011Q1

REPORT INFORMATION
  Report Type: 
  Country: None (occurrence: None)
  Receive Date: 20110118
  Receipt Date: 20110107
  Transmission Date: 20110831
  Serious: Yes (Other)
  Sender: FDA-Public Use
  Company Number: FR-20110002

PATIENT
  Age: 67 Year
  Sex: Male

DRUGS (5)
  1. ATENOIOL (ATENOLOL) (ATENOLOL) [Concomitant]
  2. NICORANDIL (NICORANDIL) (NICORANDIL) [Concomitant]
  3. HEXABRIX [Suspect]
     Indication: ARTERIOGRAM CORONARY
     Dosage: INTRACORONARY
     Route: 022
  4. BEPRIDIL (BEPRIDIL) [Suspect]
     Indication: CORONARY ARTERY DISEASE
     Dosage: 200 MG (200 MG, 1 N 1 D)
  5. MOLSIDOMINE (MOLSIDOMINR) (MOLSIDOMINE) [Concomitant]

REACTIONS (4)
  - VENTRICULAR TACHYCARDIA [None]
  - HEART RATE DECREASED [None]
  - ELECTROCARDIOGRAM QT PROLONGED [None]
  - TORSADE DE POINTES [None]
